FAERS Safety Report 9775929 (Version 1)
Quarter: 2013Q4

REPORT INFORMATION
  Report Type: Spontaneous
  Country: IT (occurrence: IT)
  Receive Date: 20131220
  Receipt Date: 20131220
  Transmission Date: 20140711
  Serious: Yes (Other)
  Sender: FDA-Public Use
  Company Number: IT-TEVA-449284ISR

PATIENT
  Age: 40 Year
  Sex: Female
  Weight: 75 kg

DRUGS (2)
  1. TAMOXIFENE RATIOPHARM 20 MG [Suspect]
     Indication: BREAST CANCER IN SITU
     Dosage: 20 MILLIGRAM DAILY;
     Route: 048
     Dates: start: 20130711, end: 20131025
  2. HERCEPTIN [Concomitant]
     Indication: BREAST CANCER IN SITU
     Dosage: 6 MG/KG DAILY;
     Route: 042
     Dates: start: 20130801, end: 20130811

REACTIONS (2)
  - Electrocardiogram QT prolonged [Recovering/Resolving]
  - Ventricular extrasystoles [Recovering/Resolving]
